FAERS Safety Report 4305332-3 (Version None)
Quarter: 2004Q1

REPORT INFORMATION
  Report Type: 
  Country: None (occurrence: None)
  Receive Date: 20040226
  Receipt Date: 20030609
  Transmission Date: 20041129
  Serious: No
  Sender: FDA-Public Use
  Company Number: US-BRISTOL-MYERS SQUIBB COMPANY-12295812

PATIENT
  Age: 67 Year
  Sex: Female

DRUGS (10)
  1. TAXOL [Suspect]
     Indication: LUNG NEOPLASM MALIGNANT
     Route: 042
     Dates: start: 20030513, end: 20030513
  2. TAGAMET [Concomitant]
     Indication: PREMEDICATION
     Dates: start: 20030513, end: 20030513
  3. BENADRYL [Concomitant]
     Indication: PREMEDICATION
     Dates: start: 20030513, end: 20030513
  4. DECADRON [Concomitant]
     Indication: PREMEDICATION
     Dates: start: 20030513, end: 20030513
  5. ANZEMET [Concomitant]
     Indication: PREMEDICATION
     Route: 042
     Dates: start: 20030513, end: 20030513
  6. XANAX [Concomitant]
  7. ZOLOFT [Concomitant]
  8. ADVAIR DISKUS 100/50 [Concomitant]
     Route: 055
  9. COMBIVENT [Concomitant]
     Route: 055
  10. ZYPREXA [Concomitant]

REACTIONS (2)
  - DYSPNOEA [None]
  - ERYTHEMA [None]
